FAERS Safety Report 23661712 (Version 1)
Quarter: 2024Q1

REPORT INFORMATION
  Report Type: Report from Study
  Country: GB (occurrence: GB)
  Receive Date: 20240322
  Receipt Date: 20240322
  Transmission Date: 20240409
  Serious: Yes (Death)
  Sender: FDA-Public Use
  Company Number: GB-BAYER-2024A036901

PATIENT
  Age: 73 Year
  Sex: Female

DRUGS (1)
  1. VENTAVIS [Suspect]
     Active Substance: ILOPROST
     Indication: Pulmonary arterial hypertension
     Dosage: UNK
     Route: 055
     Dates: start: 20231102, end: 20240311

REACTIONS (3)
  - Gastrointestinal haemorrhage [Fatal]
  - Scleroderma [Fatal]
  - Product dose omission issue [Unknown]
